FAERS Safety Report 11317017 (Version 1)
Quarter: 2015Q3

REPORT INFORMATION
  Report Type: Spontaneous
  Country: CH (occurrence: CH)
  Receive Date: 20150728
  Receipt Date: 20150728
  Transmission Date: 20151125
  Serious: Yes (Other)
  Sender: FDA-Public Use
  Company Number: CH-PFIZER INC-2015245961

PATIENT
  Age: 47 Year
  Sex: Male

DRUGS (7)
  1. TRIMIPRAMIN /00051802/ [Interacting]
     Active Substance: TRIMIPRAMINE MALEATE
     Dosage: 75 MG, DAILY
     Route: 048
     Dates: start: 20150623, end: 20150629
  2. EFFEXOR XR [Interacting]
     Active Substance: VENLAFAXINE HYDROCHLORIDE
     Dosage: 75 MG, DAILY
     Route: 048
     Dates: start: 20150623, end: 20150629
  3. TRIMIPRAMIN /00051802/ [Interacting]
     Active Substance: TRIMIPRAMINE MALEATE
     Dosage: 100 MG, DAILY
     Route: 048
     Dates: start: 20150619, end: 20150622
  4. LYRICA [Concomitant]
     Active Substance: PREGABALIN
     Dosage: 350 MG, DAILY
     Route: 048
  5. TRIMIPRAMIN /00051802/ [Interacting]
     Active Substance: TRIMIPRAMINE MALEATE
     Dosage: 150 MG, 1X/DAY
     Route: 048
     Dates: end: 20150618
  6. EFFEXOR XR [Suspect]
     Active Substance: VENLAFAXINE HYDROCHLORIDE
     Indication: DEPRESSION
     Dosage: 37.5 MG, 1X/DAY
     Route: 048
     Dates: start: 20150619, end: 20150622
  7. LORAZEPAM. [Concomitant]
     Active Substance: LORAZEPAM
     Dosage: 3 MG, 1X/DAY
     Route: 048

REACTIONS (7)
  - Drug interaction [Recovered/Resolved]
  - Serotonin syndrome [Recovered/Resolved]
  - Mydriasis [Recovered/Resolved]
  - Diarrhoea [Recovered/Resolved]
  - Tremor [Recovered/Resolved]
  - Agitation [Recovered/Resolved]
  - Myoclonus [Recovered/Resolved]

NARRATIVE: CASE EVENT DATE: 20150624
